FAERS Safety Report 8503998-5 (Version None)
Quarter: 2012Q3

REPORT INFORMATION
  Report Type: 
  Country: None (occurrence: None)
  Receive Date: 20120711
  Receipt Date: 20120629
  Transmission Date: 20120928
  Serious: Yes (Other)
  Sender: FDA-Public Use
  Company Number: TR-009507513-1207TUR000276

PATIENT

DRUGS (1)
  1. JANUVIA [Suspect]
     Dosage: UNK, QD

REACTIONS (1)
  - PHARYNGITIS [None]
